FAERS Safety Report 7339006-1 (Version None)
Quarter: 2011Q1

REPORT INFORMATION
  Report Type: 
  Country: None (occurrence: None)
  Receive Date: 20110228
  Receipt Date: 20110211
  Transmission Date: 20110831
  Serious: Yes (Death, Hospitalization)
  Sender: FDA-Public Use
  Company Number: 2011AC000011

PATIENT
  Age: 60 Year
  Sex: Male

DRUGS (42)
  1. DIGOXIN [Suspect]
     Dosage: 0.125 MG;QD;PO
     Route: 048
     Dates: start: 19940401, end: 20080515
  2. DOBUTREX [Concomitant]
  3. PEPCID [Concomitant]
  4. LASIX [Concomitant]
  5. SODIUM BICARBONATE [Concomitant]
  6. PHOSLO [Concomitant]
  7. CYCLOBENZAPRINE [Concomitant]
  8. SIMVASTATIN [Concomitant]
  9. QUINAPRIL [Concomitant]
  10. SURFAK [Concomitant]
  11. ANTIBIOTIC THERAPY [Concomitant]
  12. LOPID [Concomitant]
  13. AZITHROMYCIN [Concomitant]
  14. DIGOXIN [Suspect]
     Dosage: .25 MG;QD;PO
     Route: 048
  15. AMIODARONE HCL [Concomitant]
  16. HUMULIN INSULIN [Concomitant]
  17. LIDOCAINE [Concomitant]
  18. MULTIPLE VITAMIN [Concomitant]
  19. CIPRO [Concomitant]
  20. NPH INSULIN [Concomitant]
  21. NITROGLYCERIN [Concomitant]
  22. MUPIROCIN [Concomitant]
  23. CEFTIBUTEN [Concomitant]
  24. COREG [Concomitant]
  25. VITAMIN D [Concomitant]
  26. ISMO [Concomitant]
  27. MICRO-K [Concomitant]
  28. CARDERONE [Concomitant]
  29. IMDUR [Concomitant]
  30. GEMFIBROZIL [Concomitant]
  31. HYDROCODONE BITARTRATE [Concomitant]
  32. ISORBIDE [Concomitant]
  33. FISH OIL [Concomitant]
  34. CARVEDILOL [Concomitant]
  35. TRAMADOL [Concomitant]
  36. ASPIRIN [Concomitant]
  37. PERCOCET [Concomitant]
  38. VIAGRA [Concomitant]
  39. CHLORDIAZEPOXIDE [Concomitant]
  40. ACCUPRIL [Concomitant]
  41. POTASSIUM CHLORIDE [Concomitant]
  42. LOVASTATIN [Concomitant]

REACTIONS (84)
  - VENTRICULAR HYPOKINESIA [None]
  - RENAL FAILURE CHRONIC [None]
  - AORTIC VALVE DISEASE [None]
  - BRONCHITIS [None]
  - MALAISE [None]
  - HYPERTENSIVE NEPHROPATHY [None]
  - RHINITIS ALLERGIC [None]
  - CEREBROVASCULAR DISORDER [None]
  - MYOCARDIAL ISCHAEMIA [None]
  - INJURY [None]
  - CARDIOMEGALY [None]
  - MITRAL VALVE INCOMPETENCE [None]
  - RENAL DISORDER [None]
  - STRABISMUS [None]
  - DIPLOPIA [None]
  - DIZZINESS [None]
  - DILATATION VENTRICULAR [None]
  - MITRAL VALVE CALCIFICATION [None]
  - TRICUSPID VALVE INCOMPETENCE [None]
  - BLOOD PRESSURE INADEQUATELY CONTROLLED [None]
  - CARDIOMYOPATHY [None]
  - VENTRICULAR TACHYCARDIA [None]
  - LEFT VENTRICULAR DYSFUNCTION [None]
  - LEUKOCYTOSIS [None]
  - CARDIOACTIVE DRUG LEVEL DECREASED [None]
  - CHOLECYSTITIS ACUTE [None]
  - HAEMORRHOIDS [None]
  - COUGH [None]
  - MITRAL VALVE DISEASE [None]
  - FATIGUE [None]
  - BLOOD MAGNESIUM ABNORMAL [None]
  - VOMITING [None]
  - DILATATION ATRIAL [None]
  - THIRST [None]
  - NEPHROSCLEROSIS [None]
  - VENTRICULAR EXTRASYSTOLES [None]
  - CARDIAC FAILURE CONGESTIVE [None]
  - BLADDER NEOPLASM [None]
  - ANAL SPASM [None]
  - PNEUMONIA [None]
  - CHRONIC OBSTRUCTIVE PULMONARY DISEASE [None]
  - BREATH SOUNDS ABNORMAL [None]
  - NEPHROGENIC ANAEMIA [None]
  - FLATULENCE [None]
  - ABDOMINAL PAIN [None]
  - RENAL FAILURE ACUTE [None]
  - HYPOVOLAEMIA [None]
  - PRODUCT QUALITY ISSUE [None]
  - PULMONARY HYPERTENSION [None]
  - ECONOMIC PROBLEM [None]
  - ANAL FISSURE [None]
  - BLOOD GLUCOSE INCREASED [None]
  - BORDERLINE GLAUCOMA [None]
  - ARTERIOSCLEROSIS CORONARY ARTERY [None]
  - HYPERKALAEMIA [None]
  - AORTIC VALVE SCLEROSIS [None]
  - AORTIC VALVE INCOMPETENCE [None]
  - TACHYCARDIA [None]
  - HYPERCHOLESTEROLAEMIA [None]
  - CATARACT NUCLEAR [None]
  - ARRHYTHMIA [None]
  - CARDIAC FAILURE [None]
  - AZOTAEMIA [None]
  - ANORECTAL STENOSIS [None]
  - URETERIC OBSTRUCTION [None]
  - BLOOD URIC ACID INCREASED [None]
  - PULMONARY OEDEMA [None]
  - TRICUSPID VALVE DISEASE [None]
  - RESPIRATORY DISORDER [None]
  - ACUTE RESPIRATORY FAILURE [None]
  - ORTHOSTATIC HYPOTENSION [None]
  - DRUG INTERACTION [None]
  - ELECTROCARDIOGRAM T WAVE ABNORMAL [None]
  - UNEVALUABLE EVENT [None]
  - DYSPNOEA [None]
  - PALPITATIONS [None]
  - CALCULUS URETERIC [None]
  - ANXIETY [None]
  - SEPTIC SHOCK [None]
  - HYPERPARATHYROIDISM [None]
  - BLOOD PHOSPHORUS ABNORMAL [None]
  - NAUSEA [None]
  - LEFT VENTRICULAR HYPERTROPHY [None]
  - ELECTROCARDIOGRAM ABNORMAL [None]
